FAERS Safety Report 20504944 (Version 3)
Quarter: 2022Q2

REPORT INFORMATION
  Report Type: Spontaneous
  Country: AU (occurrence: AU)
  Receive Date: 20220223
  Receipt Date: 20220407
  Transmission Date: 20220721
  Serious: Yes (Hospitalization, Other)
  Sender: FDA-Public Use
  Company Number: AU-BRISTOL-MYERS SQUIBB COMPANY-BMS-2022-022959

PATIENT
  Age: 60 Year
  Sex: Female
  Weight: 58 kg

DRUGS (3)
  1. ORENCIA [Suspect]
     Active Substance: ABATACEPT
     Indication: Rheumatoid arthritis
     Dosage: ONE INJECTION WEEKLY
     Route: 065
  2. ORENCIA [Suspect]
     Active Substance: ABATACEPT
  3. PREDNISOLONE [Concomitant]
     Active Substance: PREDNISOLONE

REACTIONS (13)
  - Dizziness [Unknown]
  - Syncope [Unknown]
  - Nasopharyngitis [Unknown]
  - Hypotension [Unknown]
  - Lower limb fracture [Unknown]
  - Accident [Unknown]
  - Weight decreased [Unknown]
  - Injection site bruising [Unknown]
  - Contusion [Unknown]
  - Intentional product use issue [Unknown]
  - Product availability issue [Unknown]
  - Treatment noncompliance [Unknown]
  - Malaise [Unknown]

NARRATIVE: CASE EVENT DATE: 20201101
